FAERS Safety Report 7754701-8 (Version None)
Quarter: 2011Q3

REPORT INFORMATION
  Report Type: 
  Country: None (occurrence: None)
  Receive Date: 20110915
  Receipt Date: 20110907
  Transmission Date: 20111222
  Serious: Yes (Hospitalization)
  Sender: FDA-Public Use
  Company Number: DE-AMGEN-KDC437203

PATIENT
  Age: 66 Year
  Sex: Female

DRUGS (6)
  1. PANTOPRAZOLE [Concomitant]
  2. TRASTUZUMAB [Suspect]
     Indication: BREAST CANCER
     Dosage: 450 MG, Q3WK
     Route: 042
     Dates: start: 20100623
  3. EPIRUBICIN [Suspect]
     Indication: BREAST CANCER
     Dosage: 161 MG, Q3WK
     Route: 042
     Dates: start: 20100623
  4. NEULASTA [Suspect]
     Indication: PRODUCT USED FOR UNKNOWN INDICATION
     Dosage: 6 MG, UNK
     Dates: start: 20100826, end: 20100826
  5. KARVEA [Concomitant]
  6. CYCLOPHOSPHAMIDE [Suspect]
     Indication: BREAST CANCER
     Dosage: 1074 MG, Q3WK
     Route: 042
     Dates: start: 20100623

REACTIONS (3)
  - FEAR [None]
  - PAIN [None]
  - NAUSEA [None]
